FAERS Safety Report 8007637-1 (Version None)
Quarter: 2011Q4

REPORT INFORMATION
  Report Type: 
  Country: None (occurrence: None)
  Receive Date: 20111222
  Receipt Date: 20111222
  Transmission Date: 20120403
  Serious: No
  Sender: FDA-Public Use
  Company Number: None

PATIENT
  Sex: Female

DRUGS (1)
  1. FOSAMAX [Suspect]
     Indication: OSTEOPOROSIS
     Dosage: 70MG ONCE A WEEK BY MOUTH
     Route: 048
     Dates: start: 20030101, end: 20110101

REACTIONS (2)
  - BONE LOSS [None]
  - ORAL DISORDER [None]
